FAERS Safety Report 12517115 (Version 13)
Quarter: 2019Q2

REPORT INFORMATION
  Report Type: Report from Study
  Country: GB (occurrence: GB)
  Receive Date: 20160630
  Receipt Date: 20190419
  Transmission Date: 20190711
  Serious: Yes (Death)
  Sender: FDA-Public Use
  Company Number: GB-PFIZER INC-2016320052

PATIENT
  Age: 40 Year
  Sex: Female

DRUGS (24)
  1. SERTRALINE HCL [Interacting]
     Active Substance: SERTRALINE HYDROCHLORIDE
     Indication: GENERALISED ANXIETY DISORDER
  2. CODEINE [Interacting]
     Active Substance: CODEINE
     Indication: NEURALGIA
     Dosage: UNK
  3. CODEINE [Interacting]
     Active Substance: CODEINE
     Indication: EPILEPSY
  4. DIAZEPAM. [Interacting]
     Active Substance: DIAZEPAM
     Indication: GENERALISED ANXIETY DISORDER
  5. PREGABALIN. [Interacting]
     Active Substance: PREGABALIN
     Indication: GENERALISED ANXIETY DISORDER
  6. DIAZEPAM. [Interacting]
     Active Substance: DIAZEPAM
     Indication: EPILEPSY
  7. AMITRIPTYLINE [Interacting]
     Active Substance: AMITRIPTYLINE
     Indication: EPILEPSY
  8. PREGABALIN. [Suspect]
     Active Substance: PREGABALIN
     Indication: NEURALGIA
     Dosage: 300 MG, UNK
  9. FLUOXETINE [Interacting]
     Active Substance: FLUOXETINE HYDROCHLORIDE
     Indication: EPILEPSY
  10. PREGABALIN. [Interacting]
     Active Substance: PREGABALIN
     Indication: EPILEPSY
  11. CODEINE [Interacting]
     Active Substance: CODEINE
     Indication: GENERALISED ANXIETY DISORDER
  12. BUPRENORPHINE. [Interacting]
     Active Substance: BUPRENORPHINE
     Indication: EPILEPSY
  13. BUPRENORPHINE. [Interacting]
     Active Substance: BUPRENORPHINE
     Indication: GENERALISED ANXIETY DISORDER
  14. DIAZEPAM. [Interacting]
     Active Substance: DIAZEPAM
     Indication: NEURALGIA
     Dosage: UNK
  15. AMITRIPTYLINE [Interacting]
     Active Substance: AMITRIPTYLINE
     Indication: GENERALISED ANXIETY DISORDER
  16. METHADONE [Interacting]
     Active Substance: METHADONE HYDROCHLORIDE
     Indication: NEURALGIA
     Dosage: UNK
  17. METHADONE [Interacting]
     Active Substance: METHADONE HYDROCHLORIDE
     Indication: EPILEPSY
  18. FLUOXETINE [Interacting]
     Active Substance: FLUOXETINE HYDROCHLORIDE
     Indication: NEURALGIA
     Dosage: UNK
  19. BUPRENORPHINE. [Interacting]
     Active Substance: BUPRENORPHINE
     Indication: NEURALGIA
     Dosage: UNK
  20. METHADONE [Interacting]
     Active Substance: METHADONE HYDROCHLORIDE
     Indication: GENERALISED ANXIETY DISORDER
  21. SERTRALINE HCL [Interacting]
     Active Substance: SERTRALINE HYDROCHLORIDE
     Indication: NEURALGIA
     Dosage: UNK
  22. SERTRALINE HCL [Interacting]
     Active Substance: SERTRALINE HYDROCHLORIDE
     Indication: EPILEPSY
  23. FLUOXETINE [Interacting]
     Active Substance: FLUOXETINE HYDROCHLORIDE
     Indication: GENERALISED ANXIETY DISORDER
  24. AMITRIPTYLINE [Interacting]
     Active Substance: AMITRIPTYLINE
     Indication: NEURALGIA
     Dosage: UNK

REACTIONS (4)
  - Toxicity to various agents [Fatal]
  - Pulmonary oedema [Fatal]
  - Drug interaction [Fatal]
  - Brain oedema [Fatal]
